FAERS Safety Report 5015655-0 (Version None)
Quarter: 2006Q2

REPORT INFORMATION
  Report Type: 
  Country: None (occurrence: None)
  Receive Date: 20060601
  Receipt Date: 20060526
  Transmission Date: 20061013
  Serious: Yes (Other)
  Sender: FDA-Public Use
  Company Number: BR-GLAXOSMITHKLINE-A0607337A

PATIENT
  Sex: Male

DRUGS (1)
  1. ZEFFIX [Suspect]
     Indication: DRUG USE FOR UNKNOWN INDICATION
     Dates: start: 20040101

REACTIONS (1)
  - RENAL FAILURE [None]
